FAERS Safety Report 8348416-5 (Version None)
Quarter: 2012Q2

REPORT INFORMATION
  Report Type: 
  Country: None (occurrence: None)
  Receive Date: 20120509
  Receipt Date: 20120424
  Transmission Date: 20120825
  Serious: Yes (Other)
  Sender: FDA-Public Use
  Company Number: CHPA2012US009911

PATIENT
  Age: 56 Year
  Sex: Female

DRUGS (1)
  1. MICONAZOLE NITRATE [Suspect]
     Indication: TINEA PEDIS
     Dosage: EVERY MORNING IN HER SHOES
     Route: 061
     Dates: start: 20020101

REACTIONS (2)
  - BREAST CANCER [None]
  - INCORRECT DRUG ADMINISTRATION DURATION [None]
